FAERS Safety Report 20169767 (Version 2)
Quarter: 2022Q1

REPORT INFORMATION
  Report Type: Spontaneous
  Country: US (occurrence: None)
  Receive Date: 20211210
  Receipt Date: 20220214
  Transmission Date: 20220423
  Serious: Yes (Other)
  Sender: FDA-Public Use
  Company Number: US-ROCHE-2974394

PATIENT
  Age: 51 Year
  Sex: Female
  Weight: 50.848 kg

DRUGS (7)
  1. NUTROPIN [Suspect]
     Active Substance: SOMATROPIN
     Indication: Failure to thrive
     Dosage: 10 MG/2ML
     Route: 058
     Dates: start: 2019
  2. NUTROPIN [Suspect]
     Active Substance: SOMATROPIN
  3. NUTROPIN [Suspect]
     Active Substance: SOMATROPIN
     Indication: Asthenia
     Dosage: 10 MG/2ML
     Route: 058
     Dates: start: 20201022
  4. NUTROPIN [Suspect]
     Active Substance: SOMATROPIN
  5. NUTROPIN [Suspect]
     Active Substance: SOMATROPIN
     Indication: Hypopituitarism
  6. NUTROPIN [Suspect]
     Active Substance: SOMATROPIN
  7. TIROSINT [Concomitant]
     Active Substance: LEVOTHYROXINE SODIUM
     Route: 048

REACTIONS (3)
  - Product container issue [Unknown]
  - Off label use [Unknown]
  - No adverse event [Unknown]

NARRATIVE: CASE EVENT DATE: 20211201
